FAERS Safety Report 11395702 (Version 1)
Quarter: 2015Q3

REPORT INFORMATION
  Report Type: Spontaneous
  Country: US (occurrence: None)
  Receive Date: 20150818
  Receipt Date: 20150818
  Transmission Date: 20151125
  Serious: Yes (Other)
  Sender: FDA-Public Use
  Company Number: None

PATIENT
  Age: 68 Year
  Sex: Female
  Weight: 79.38 kg

DRUGS (9)
  1. PRILOSEC [Concomitant]
     Active Substance: OMEPRAZOLE MAGNESIUM
  2. ASPIRIN. [Concomitant]
     Active Substance: ASPIRIN
  3. OXYGEN+ CPAP MACHINE/NASACORT [Concomitant]
  4. LEVAQUIN [Suspect]
     Active Substance: LEVOFLOXACIN
     Indication: ASTHMA
     Dates: start: 20141228, end: 20150104
  5. CRESTOR [Concomitant]
     Active Substance: ROSUVASTATIN CALCIUM
  6. AWTIHISTINE HCI [Concomitant]
  7. PULMACORT [Concomitant]
  8. LEVAQUIN [Suspect]
     Active Substance: LEVOFLOXACIN
     Indication: LUNG DISORDER
     Dates: start: 20141228, end: 20150104
  9. D3 [Concomitant]
     Active Substance: 25-HYDROXYCHOLECALCIFEROL, 5-TRANS-

REACTIONS (3)
  - Tendon pain [None]
  - Pain in extremity [None]
  - Myalgia [None]

NARRATIVE: CASE EVENT DATE: 20141228
